FAERS Safety Report 21046805 (Version 1)
Quarter: 2022Q3

REPORT INFORMATION
  Report Type: Spontaneous
  Country: US (occurrence: None)
  Receive Date: 20220705
  Receipt Date: 20220705
  Transmission Date: 20221027
  Serious: Yes (Hospitalization)
  Sender: FDA-Public Use
  Company Number: None

PATIENT
  Sex: Female

DRUGS (4)
  1. MYCOPHENOLIC ACID [Suspect]
     Active Substance: MYCOPHENOLIC ACID
     Indication: Renal transplant
     Dosage: FREQUENCY : DAILY;?
     Route: 048
     Dates: start: 20220222
  2. TACROLIMUS [Concomitant]
     Active Substance: TACROLIMUS
  3. TACROLIMUS [Concomitant]
     Active Substance: TACROLIMUS
  4. TACROLIMUS A [Concomitant]

REACTIONS (12)
  - Dyspnoea [None]
  - Pyrexia [None]
  - Transplantation complication [None]
  - Diarrhoea [None]
  - Cough [None]
  - Fluid retention [None]
  - Peripheral swelling [None]
  - White blood cell count decreased [None]
  - Nausea [None]
  - Vomiting [None]
  - Tremor [None]
  - Product dose omission issue [None]
